FAERS Safety Report 16554629 (Version 1)
Quarter: 2019Q3

REPORT INFORMATION
  Report Type: Spontaneous
  Country: DE (occurrence: DE)
  Receive Date: 20190710
  Receipt Date: 20190710
  Transmission Date: 20191004
  Serious: Yes (Death, Hospitalization)
  Sender: FDA-Public Use
  Company Number: DE-ANIPHARMA-2019-DE-000093

PATIENT
  Age: 94 Year
  Sex: Female

DRUGS (16)
  1. OMEPRAZOL [Concomitant]
     Active Substance: OMEPRAZOLE
     Dosage: 20 MG, 2-0-0, TABLETS
     Route: 048
  2. NOVALGIN (METAMIZOLE SODIUM) [Suspect]
     Active Substance: METAMIZOLE SODIUM
     Dosage: 500 MG, 1-1-1-1, TABLETS
     Route: 048
  3. BELOC-ZOK [Suspect]
     Active Substance: METOPROLOL SUCCINATE
     Dosage: 47.5 MG, 1-0-0, TABLETS
     Route: 048
  4. LASIX [Suspect]
     Active Substance: FUROSEMIDE
     Dosage: 40 MG, 1-1/2-0, TABLETS
     Route: 048
  5. VIGANTOLETTEN [Concomitant]
     Active Substance: CHOLECALCIFEROL
     Dosage: 1000 IE, 1-0-0, TABLETS
     Route: 048
  6. MOVICOL [Concomitant]
     Active Substance: POLYETHYLENE GLYCOL 3350\POTASSIUM CHLORIDE\SODIUM BICARBONATE\SODIUM CHLORIDE
     Dosage: 1-0-0, POWDER
     Route: 048
  7. CANDESARTAN. [Suspect]
     Active Substance: CANDESARTAN
     Indication: PRODUCT USED FOR UNKNOWN INDICATION
     Dosage: 16 MG, 1-0-1, TABLETS
     Route: 048
  8. L-THYROXIN [Concomitant]
     Active Substance: LEVOTHYROXINE SODIUM
     Dosage: 25 MG /DAY, 1-0-0, TABLETS
     Route: 048
  9. MIRTAZAPINE. [Concomitant]
     Active Substance: MIRTAZAPINE
     Dosage: 15 MG, 0-0-0-1, TABLETS
     Route: 048
  10. LYRICA [Concomitant]
     Active Substance: PREGABALIN
     Dosage: : 75 MG, 1-0-1, TABLETS
     Route: 048
  11. LAXOBERAL [Concomitant]
     Active Substance: SODIUM PICOSULFATE
     Dosage: : 3X WEEKLY, DROPS
     Route: 048
  12. MAGNESIUM [Concomitant]
     Active Substance: MAGNESIUM
     Dosage: 1-0-0
     Route: 048
  13. VERRUMAL [Concomitant]
     Dosage: EVERY 3 DAYS
     Route: 065
  14. AMLODIPIN [Suspect]
     Active Substance: AMLODIPINE BESYLATE
     Dosage: 5 MG, 1-1-1, TABLETS
     Route: 048
  15. ELIQUIS [Concomitant]
     Active Substance: APIXABAN
     Dosage: 2.5 MG, 1-0-1, TABLETS
     Route: 048
  16. ARTELAC [Concomitant]
     Active Substance: HYPROMELLOSES
     Dosage: : 1-1-1, DROPS

REACTIONS (4)
  - Medication error [Unknown]
  - Death [Fatal]
  - Oedema peripheral [Unknown]
  - Dyspnoea [Unknown]

NARRATIVE: CASE EVENT DATE: 20170205
